FAERS Safety Report 6858788-6 (Version None)
Quarter: 2010Q3

REPORT INFORMATION
  Report Type: 
  Country: None (occurrence: None)
  Receive Date: 20100719
  Receipt Date: 20080219
  Transmission Date: 20110219
  Serious: No
  Sender: FDA-Public Use
  Company Number: US-PFIZER INC-2008016046

PATIENT
  Sex: Female
  Weight: 47.727 kg

DRUGS (3)
  1. CHANTIX [Suspect]
     Indication: SMOKING CESSATION THERAPY
     Route: 048
     Dates: start: 20080205
  2. LEXAPRO [Concomitant]
  3. CONCERTA [Concomitant]

REACTIONS (2)
  - DYSGEUSIA [None]
  - PRURITUS [None]
